FAERS Safety Report 7318790-7 (Version None)
Quarter: 2011Q1

REPORT INFORMATION
  Report Type: 
  Country: None (occurrence: None)
  Receive Date: 20110228
  Receipt Date: 20100709
  Transmission Date: 20110831
  Serious: No
  Sender: FDA-Public Use
  Company Number: A0863352A

PATIENT
  Age: 42 Year
  Sex: Male

DRUGS (4)
  1. IMITREX [Suspect]
     Route: 058
     Dates: start: 20090312
  2. ACIPHEX [Concomitant]
  3. CARAFATE [Concomitant]
  4. TRAMADOL [Concomitant]

REACTIONS (2)
  - DRUG INEFFECTIVE [None]
  - PRODUCT QUALITY ISSUE [None]
